FAERS Safety Report 19430160 (Version 2)
Quarter: 2021Q3

REPORT INFORMATION
  Report Type: Spontaneous
  Country: IN (occurrence: IN)
  Receive Date: 20210617
  Receipt Date: 20210715
  Transmission Date: 20211014
  Serious: Yes (Other)
  Sender: FDA-Public Use
  Company Number: IN-LUPIN PHARMACEUTICALS INC.-2021-09487

PATIENT
  Age: 22 Year
  Sex: Male

DRUGS (5)
  1. LINEZOLID. [Suspect]
     Active Substance: LINEZOLID
     Indication: LIVER ABSCESS
     Dosage: 600 MILLIGRAM, BID
     Route: 048
  2. PREDNISOLONE. [Concomitant]
     Active Substance: PREDNISOLONE
     Indication: DRUG THERAPY
     Dosage: 40 MILLIGRAM, QD
     Route: 048
  3. TRIMETHOPRIM SULFAMETHOXAZOLE [Concomitant]
     Active Substance: SULFAMETHOXAZOLE\TRIMETHOPRIM
     Indication: ANTIBIOTIC PROPHYLAXIS
     Dosage: UNK,  HE RECEIVED 400 + 80 MG/DAY
     Route: 065
  4. ITRACONAZOLE. [Interacting]
     Active Substance: ITRACONAZOLE
     Indication: ANTIBIOTIC PROPHYLAXIS
     Dosage: 200 MILLIGRAM, QD
     Route: 065
  5. VANCOMYCIN [Concomitant]
     Active Substance: VANCOMYCIN
     Indication: STAPHYLOCOCCAL INFECTION
     Dosage: UNK
     Route: 042

REACTIONS (8)
  - Blood lactic acid increased [Unknown]
  - Papilloedema [Recovered/Resolved]
  - Drug interaction [Recovering/Resolving]
  - Mitochondrial toxicity [Recovering/Resolving]
  - Retinal cyst [Recovered/Resolved]
  - Toxicity to various agents [Recovering/Resolving]
  - Neuropathy peripheral [Recovered/Resolved]
  - Optic neuropathy [Recovered/Resolved]
